FAERS Safety Report 7424878-2 (Version None)
Quarter: 2011Q2

REPORT INFORMATION
  Report Type: 
  Country: None (occurrence: None)
  Receive Date: 20110419
  Receipt Date: 20110412
  Transmission Date: 20111010
  Serious: Yes (Death)
  Sender: FDA-Public Use
  Company Number: GB-MERCK-0809GBR00071

PATIENT
  Age: 81 Year
  Sex: Male

DRUGS (8)
  1. ZOCOR [Suspect]
     Indication: BLOOD CHOLESTEROL INCREASED
     Route: 048
     Dates: start: 20080714, end: 20080814
  2. METFORMIN [Concomitant]
     Route: 065
  3. FUSIDIC ACID [Suspect]
     Indication: OSTEOMYELITIS
     Route: 048
     Dates: end: 20080814
  4. ASPIRIN [Concomitant]
     Route: 065
  5. RAMIPRIL [Concomitant]
     Route: 065
  6. FLOXACILLIN [Concomitant]
     Route: 065
  7. GLICLAZIDE [Concomitant]
     Route: 065
  8. LACIDIPINE [Concomitant]
     Route: 065

REACTIONS (2)
  - RHABDOMYOLYSIS [None]
  - DRUG INTERACTION [None]
